FAERS Safety Report 5805339-0 (Version None)
Quarter: 2008Q3

REPORT INFORMATION
  Report Type: 
  Country: None (occurrence: None)
  Receive Date: 20080709
  Receipt Date: 20080701
  Transmission Date: 20090109
  Serious: Yes (Other)
  Sender: FDA-Public Use
  Company Number: US-ELI_LILLY_AND_COMPANY-US200807000542

PATIENT
  Sex: Female

DRUGS (2)
  1. HUMALOG [Suspect]
  2. HUMALOG [Suspect]

REACTIONS (4)
  - BLOOD GLUCOSE INCREASED [None]
  - CARDIAC OPERATION [None]
  - PHARMACEUTICAL PRODUCT COMPLAINT [None]
  - VISUAL ACUITY REDUCED [None]
